FAERS Safety Report 4573914-X (Version None)
Quarter: 2005Q1

REPORT INFORMATION
  Report Type: 
  Country: None (occurrence: None)
  Receive Date: 20050203
  Receipt Date: 20050128
  Transmission Date: 20050727
  Serious: Yes (Other)
  Sender: FDA-Public Use
  Company Number: THQ2005A00156

PATIENT
  Sex: Female

DRUGS (1)
  1. HELIMET (LANSOPRAZOLE, CLARITHROMYCIN, METRONIDAZOLE) [Suspect]

REACTIONS (11)
  - BACK PAIN [None]
  - BLISTER [None]
  - CHEST PAIN [None]
  - DYSPHAGIA [None]
  - DYSPNOEA [None]
  - ERYTHEMA [None]
  - HYPERSENSITIVITY [None]
  - INFLAMMATION [None]
  - JOINT SWELLING [None]
  - PRURITUS GENERALISED [None]
  - RASH PAPULAR [None]
